FAERS Safety Report 4922365-4 (Version None)
Quarter: 2006Q1

REPORT INFORMATION
  Report Type: 
  Country: None (occurrence: None)
  Receive Date: 20060224
  Receipt Date: 20051026
  Transmission Date: 20060701
  Serious: Yes (Hospitalization)
  Sender: FDA-Public Use
  Company Number: US-MERCK-0510USA09497

PATIENT
  Age: 50 Year
  Sex: Male
  Weight: 100 kg

DRUGS (14)
  1. VIOXX [Suspect]
     Indication: ARTHRITIS
     Route: 048
     Dates: start: 20021101, end: 20040930
  2. VIOXX [Suspect]
     Indication: BACK PAIN
     Route: 048
     Dates: start: 20021101, end: 20040930
  3. ALTACE [Concomitant]
     Indication: HYPERTENSION
     Route: 048
     Dates: start: 20030808
  4. ATENOL [Concomitant]
     Indication: HYPERTENSION
     Route: 048
     Dates: start: 20030711
  5. NITROGLYCERIN [Concomitant]
     Indication: CHEST PAIN
     Route: 060
     Dates: start: 20030711
  6. ASPIRIN [Concomitant]
     Indication: CARDIOVASCULAR EVENT PROPHYLAXIS
     Route: 048
     Dates: start: 20030803
  7. PLAVIX [Concomitant]
     Indication: CARDIOVASCULAR EVENT PROPHYLAXIS
     Route: 048
     Dates: start: 20030711, end: 20040309
  8. LIPITOR [Concomitant]
     Indication: BLOOD CHOLESTEROL INCREASED
     Route: 048
     Dates: start: 20030711, end: 20040211
  9. DETROL [Concomitant]
     Indication: URINARY TRACT DISORDER
     Route: 048
  10. FLOMAX (MORNIFLUMATE) [Concomitant]
     Indication: URINARY TRACT DISORDER
     Route: 048
  11. AMOXICILLIN [Concomitant]
     Indication: INFECTION
     Route: 048
  12. PROSCAR [Concomitant]
     Indication: PROSTATIC DISORDER
     Route: 048
  13. ACETAMINOPHEN AND PROPOXYPHENE NAPSYLATE [Concomitant]
     Indication: PAIN
     Route: 048
     Dates: start: 20040621
  14. ACETAMINOPHEN AND HYDROCODONE BITARTRATE [Concomitant]
     Route: 048

REACTIONS (9)
  - ARTERIAL INJURY [None]
  - BLOOD CHOLESTEROL INCREASED [None]
  - BLOOD TRIGLYCERIDES INCREASED [None]
  - CHEST PAIN [None]
  - DYSPNOEA [None]
  - INJURY [None]
  - NEPHROLITHIASIS [None]
  - PAIN IN EXTREMITY [None]
  - PROSTATIC DISORDER [None]
